FAERS Safety Report 24665328 (Version 1)
Quarter: 2024Q4

REPORT INFORMATION
  Report Type: Spontaneous
  Country: GB (occurrence: GB)
  Receive Date: 20241126
  Receipt Date: 20241126
  Transmission Date: 20250115
  Serious: Yes (Hospitalization)
  Sender: GENMAB
  Company Number: GB-ABBVIE-6011966

PATIENT
  Age: 74 Year

DRUGS (1)
  1. EPCORITAMAB [Suspect]
     Active Substance: EPCORITAMAB
     Indication: Diffuse large B-cell lymphoma
     Dosage: UNK
     Route: 058

REACTIONS (8)
  - Candida infection [Unknown]
  - Human rhinovirus test positive [Unknown]
  - Hypophagia [Unknown]
  - Mucosal inflammation [Unknown]
  - Oropharyngeal pain [Unknown]
  - Cellulitis [Unknown]
  - Pyrexia [Unknown]
  - Cytokine release syndrome [Unknown]
